FAERS Safety Report 4690669-9 (Version None)
Quarter: 2005Q2

REPORT INFORMATION
  Report Type: 
  Country: None (occurrence: None)
  Receive Date: 20050615
  Receipt Date: 20050609
  Transmission Date: 20051028
  Serious: Yes (Hospitalization)
  Sender: FDA-Public Use
  Company Number: IT-GLAXOSMITHKLINE-B0384435A

PATIENT
  Age: 7 Year
  Sex: Female

DRUGS (1)
  1. AUGMENTIN '125' [Suspect]
     Indication: TONSILLITIS
     Dosage: 7.5ML TWICE PER DAY
     Route: 048
     Dates: start: 20050528, end: 20050528

REACTIONS (4)
  - ABDOMINAL PAIN UPPER [None]
  - DIARRHOEA [None]
  - LEUKOCYTOSIS [None]
  - VOMITING [None]
